FAERS Safety Report 25623955 (Version 1)
Quarter: 2025Q3

REPORT INFORMATION
  Report Type: Spontaneous
  Country: US (occurrence: None)
  Receive Date: 20250729
  Receipt Date: 20250729
  Transmission Date: 20251021
  Serious: Yes (Disabling, Other)
  Sender: FDA-CTU
  Company Number: None

PATIENT
  Age: 54 Year
  Sex: Female
  Weight: 70.76 kg

DRUGS (7)
  1. BUPROPION HYDROCHLORIDE\CYANOCOBALAMIN\NALTREXONE HYDROCHLORIDE\TOPIRA [Suspect]
     Active Substance: BUPROPION HYDROCHLORIDE\CYANOCOBALAMIN\NALTREXONE HYDROCHLORIDE\TOPIRAMATE
     Indication: Weight control
     Dosage: FREQUENCY : DAILY?
     Route: 048
     Dates: start: 20250323, end: 20250502
  2. METFORMIN [Concomitant]
     Active Substance: METFORMIN HYDROCHLORIDE
  3. RYBELSUS [Concomitant]
     Active Substance: SEMAGLUTIDE
  4. DULOXETINE [Concomitant]
     Active Substance: DULOXETINE
  5. VITAMIN C [Concomitant]
     Active Substance: ASCORBIC ACID
  6. VITAMIN D [Concomitant]
     Active Substance: VITAMIN D NOS
  7. TYLENOL [Concomitant]
     Active Substance: ACETAMINOPHEN

REACTIONS (5)
  - Body temperature increased [None]
  - Constipation [None]
  - Blood glucose decreased [None]
  - Hallucination, auditory [None]
  - Insomnia [None]

NARRATIVE: CASE EVENT DATE: 20250502
